FAERS Safety Report 7670505-9 (Version None)
Quarter: 2011Q3

REPORT INFORMATION
  Report Type: 
  Country: None (occurrence: None)
  Receive Date: 20110809
  Receipt Date: 20110801
  Transmission Date: 20111222
  Serious: No
  Sender: FDA-Public Use
  Company Number: US-BIOGENIDEC-2011BI028721

PATIENT
  Sex: Female

DRUGS (3)
  1. AVONEX [Concomitant]
     Indication: MULTIPLE SCLEROSIS
     Route: 030
     Dates: start: 20040318, end: 20110406
  2. TYSABRI [Suspect]
     Indication: MULTIPLE SCLEROSIS
     Route: 042
     Dates: start: 20110601
  3. TYSABRI [Suspect]
     Route: 042
     Dates: start: 20050211, end: 20050211

REACTIONS (2)
  - DRUG SPECIFIC ANTIBODY PRESENT [None]
  - HYPERSENSITIVITY [None]
